FAERS Safety Report 12710489 (Version 1)
Quarter: 2016Q3

REPORT INFORMATION
  Report Type: Spontaneous
  Country: JP (occurrence: JP)
  Receive Date: 20160902
  Receipt Date: 20160902
  Transmission Date: 20161109
  Serious: No
  Sender: FDA-Public Use
  Company Number: JP-LUPIN PHARMACEUTICALS INC.-2016-01718

PATIENT
  Sex: Female

DRUGS (2)
  1. AMLODIPINE TABLET 2.5 MG ^AMEL^ [Suspect]
     Active Substance: AMLODIPINE BESYLATE
     Indication: HYPERTENSION
     Route: 048
     Dates: start: 201404, end: 20160414
  2. MYSER OINTMENT [Concomitant]
     Active Substance: DIFLUPREDNATE
     Indication: LICHEN PLANUS
     Route: 061
     Dates: start: 201604

REACTIONS (1)
  - Lichen planus [Unknown]

NARRATIVE: CASE EVENT DATE: 20160414
